FAERS Safety Report 7630168-5 (Version None)
Quarter: 2011Q3

REPORT INFORMATION
  Report Type: 
  Country: None (occurrence: None)
  Receive Date: 20110722
  Receipt Date: 20110708
  Transmission Date: 20111222
  Serious: Yes (Other)
  Sender: FDA-Public Use
  Company Number: PHHY2010JP58199

PATIENT
  Sex: Male
  Weight: 75 kg

DRUGS (5)
  1. AMLODIPINE [Concomitant]
     Indication: HYPERTENSION
     Dosage: 5 MG, UNK
     Route: 048
     Dates: start: 20080129, end: 20080225
  2. VALSARTAN [Suspect]
     Dosage: 40 MG, QD
     Route: 048
     Dates: start: 20080117
  3. LIPIDIL [Concomitant]
     Dosage: 67 MG, UNK
     Route: 048
     Dates: start: 20090317, end: 20090811
  4. LIVALO [Concomitant]
     Dosage: 1 MG, UNK
     Route: 048
     Dates: start: 20090812
  5. ASPIRIN [Concomitant]
     Dosage: 100 MG, UNK
     Route: 048
     Dates: start: 20090317

REACTIONS (1)
  - LACUNAR INFARCTION [None]
